FAERS Safety Report 10200974 (Version 2)
Quarter: 2014Q2

REPORT INFORMATION
  Report Type: Report from Study
  Country: VN (occurrence: VN)
  Receive Date: 20140528
  Receipt Date: 20140530
  Transmission Date: 20141212
  Serious: Yes (Hospitalization, Other)
  Sender: FDA-Public Use
  Company Number: PHHY2014VN062480

PATIENT
  Age: 54 Year
  Sex: Male

DRUGS (7)
  1. GLIVEC [Suspect]
     Indication: GASTROINTESTINAL STROMAL TUMOUR
     Dosage: 400 MG, DAILY
  2. GLIVEC [Suspect]
     Dosage: 600 MG, DAILY
     Dates: start: 201401, end: 201403
  3. CEFTRIAXONE [Concomitant]
     Dosage: UNK UKN, UNK
  4. METRONIDAZOLE [Concomitant]
     Dosage: UNK UKN, UNK
  5. GLUCOSE [Concomitant]
     Dosage: UNK UKN, UNK
  6. AMINO ACID [Concomitant]
     Dosage: UNK UKN, UNK
  7. SODIUM CHLORIDE [Concomitant]
     Dosage: UNK UKN, UNK

REACTIONS (12)
  - Gastrointestinal stromal tumour [Not Recovered/Not Resolved]
  - Malignant neoplasm progression [Not Recovered/Not Resolved]
  - Neoplasm recurrence [Unknown]
  - Intestinal obstruction [Unknown]
  - Abdominal pain [Unknown]
  - Gastrointestinal stoma complication [Unknown]
  - Gastrointestinal motility disorder [Unknown]
  - Delirium [Unknown]
  - General physical health deterioration [Unknown]
  - Cachexia [Unknown]
  - Fatigue [Unknown]
  - No therapeutic response [Unknown]
